FAERS Safety Report 25009042 (Version 1)
Quarter: 2025Q1

REPORT INFORMATION
  Report Type: Spontaneous
  Country: US (occurrence: None)
  Receive Date: 20250225
  Receipt Date: 20250225
  Transmission Date: 20250408
  Serious: Yes (Life-Threatening, Hospitalization)
  Sender: FDA-CTU
  Company Number: None

PATIENT
  Age: 78 Year
  Sex: Female
  Weight: 65.9 kg

DRUGS (1)
  1. ZOSYN [Suspect]
     Active Substance: PIPERACILLIN SODIUM\TAZOBACTAM SODIUM
     Indication: Diverticulitis
     Route: 041

REACTIONS (5)
  - Drug hypersensitivity [None]
  - Angioedema [None]
  - Swollen tongue [None]
  - Lip swelling [None]
  - Anaphylactic reaction [None]

NARRATIVE: CASE EVENT DATE: 20250224
